FAERS Safety Report 4834553-6 (Version None)
Quarter: 2005Q4

REPORT INFORMATION
  Report Type: 
  Country: None (occurrence: None)
  Receive Date: 20051122
  Receipt Date: 20050307
  Transmission Date: 20060501
  Serious: No
  Sender: FDA-Public Use
  Company Number: US-BRISTOL-MYERS SQUIBB COMPANY-12888897

PATIENT
  Age: 76 Year
  Sex: Male
  Weight: 143 kg

DRUGS (7)
  1. PRAVACHOL [Suspect]
     Indication: BLOOD CHOLESTEROL INCREASED
  2. INSULIN [Concomitant]
  3. DIOVAN [Concomitant]
  4. PROSCAR [Concomitant]
  5. ZANTAC [Concomitant]
  6. TRAVATAN [Concomitant]
  7. ALPHAGAN [Concomitant]

REACTIONS (3)
  - AMNESIA [None]
  - MYALGIA [None]
  - WEIGHT DECREASED [None]
